FAERS Safety Report 11419533 (Version 2)
Quarter: 2015Q3

REPORT INFORMATION
  Report Type: Spontaneous
  Country: JP (occurrence: JP)
  Receive Date: 20150826
  Receipt Date: 20150918
  Transmission Date: 20151125
  Serious: Yes (Hospitalization, Other)
  Sender: FDA-Public Use
  Company Number: JP-SHIRE-JP201510594

PATIENT
  Age: 67 Year
  Sex: Male
  Weight: 58 kg

DRUGS (5)
  1. FEBURIC [Concomitant]
     Active Substance: FEBUXOSTAT
     Indication: BLOOD URIC ACID INCREASED
     Dosage: 20 MG, 1X/DAY:QD (AFTER BREAKFAST)
     Route: 048
     Dates: start: 20150804
  2. TAKEPRON [Concomitant]
     Active Substance: LANSOPRAZOLE
     Indication: SARCOIDOSIS
     Dosage: 15 MG, 1X/DAY:QD (AFTER BREAKFAST)
     Route: 048
  3. PREDNISOLONE. [Concomitant]
     Active Substance: PREDNISOLONE
     Indication: SARCOIDOSIS
     Dosage: 5 MG, 1X/DAY:QD (AFTER BREAKFAST)
     Route: 048
  4. AGRYLIN [Suspect]
     Active Substance: ANAGRELIDE HYDROCHLORIDE
     Indication: ESSENTIAL THROMBOCYTHAEMIA
     Dosage: 3 MG/DAY, UNKNOWN
     Route: 048
     Dates: start: 20150623
  5. UNIPHYL [Concomitant]
     Active Substance: THEOPHYLLINE ANHYDROUS
     Indication: SARCOIDOSIS
     Dosage: 200 MG, 1X/DAY:QD (AFTER BREAKFAST)
     Route: 048

REACTIONS (1)
  - Transient ischaemic attack [Recovered/Resolved]

NARRATIVE: CASE EVENT DATE: 20150811
